FAERS Safety Report 17825899 (Version 2)
Quarter: 2020Q3

REPORT INFORMATION
  Report Type: Spontaneous
  Country: US (occurrence: US)
  Receive Date: 20200526
  Receipt Date: 20200819
  Transmission Date: 20201102
  Serious: Yes (Other)
  Sender: FDA-Public Use
  Company Number: US-ASTELLAS-2020US017694

PATIENT
  Age: 88 Year
  Sex: Male

DRUGS (1)
  1. XTANDI [Suspect]
     Active Substance: ENZALUTAMIDE
     Indication: PROSTATE CANCER
     Route: 048
     Dates: start: 20200420, end: 20200430

REACTIONS (4)
  - Foreign body in throat [Not Recovered/Not Resolved]
  - Product use complaint [Not Recovered/Not Resolved]
  - Product size issue [Unknown]
  - Throat irritation [Not Recovered/Not Resolved]
